FAERS Safety Report 7761545-X (Version None)
Quarter: 2011Q3

REPORT INFORMATION
  Report Type: 
  Country: None (occurrence: None)
  Receive Date: 20110920
  Receipt Date: 20110907
  Transmission Date: 20111222
  Serious: Yes (Hospitalization)
  Sender: FDA-Public Use
  Company Number: US-RB-032138-11

PATIENT
  Age: 46 Year
  Sex: Female

DRUGS (3)
  1. SUBOXONE [Suspect]
     Dosage: 2 MG DAILY
     Route: 060
     Dates: start: 20110301, end: 20110824
  2. REGLAN [Concomitant]
     Indication: ABDOMINAL DISCOMFORT
     Dosage: UNKNOWN
     Route: 065
  3. SUBOXONE [Suspect]
     Indication: DRUG DEPENDENCE
     Route: 060
     Dates: start: 20110301, end: 20110301

REACTIONS (9)
  - BODY TEMPERATURE DECREASED [None]
  - BLOOD GLUCOSE DECREASED [None]
  - WEIGHT DECREASED [None]
  - DECREASED APPETITE [None]
  - HEADACHE [None]
  - VOMITING [None]
  - RED BLOOD CELL COUNT DECREASED [None]
  - DEHYDRATION [None]
  - HYPERHIDROSIS [None]
